FAERS Safety Report 4797362-2 (Version None)
Quarter: 2005Q4

REPORT INFORMATION
  Report Type: 
  Country: None (occurrence: None)
  Receive Date: 20051013
  Receipt Date: 20050930
  Transmission Date: 20060501
  Serious: Yes (Other)
  Sender: FDA-Public Use
  Company Number: NO-JNJFOC-20051000005

PATIENT
  Sex: Male
  Weight: 70 kg

DRUGS (3)
  1. CONCERTA [Suspect]
     Route: 065
  2. CONCERTA [Suspect]
     Route: 065
  3. RITALIN [Concomitant]
     Dosage: EVERY EVENING
     Route: 065

REACTIONS (2)
  - MYOCARDIAL INFARCTION [None]
  - VENTRICULAR FIBRILLATION [None]
